FAERS Safety Report 8002860-4 (Version None)
Quarter: 2011Q4

REPORT INFORMATION
  Report Type: 
  Country: None (occurrence: None)
  Receive Date: 20111222
  Receipt Date: 20101228
  Transmission Date: 20120403
  Serious: No
  Sender: FDA-Public Use
  Company Number: US-GLAXOSMITHKLINE-A0901682A

PATIENT
  Age: 85 Year
  Sex: Male

DRUGS (4)
  1. EYE DROPS [Concomitant]
  2. AVODART [Suspect]
     Indication: PROSTATIC DISORDER
     Dosage: 1CAP PER DAY
     Route: 048
     Dates: start: 20050101
  3. ASPIRIN [Concomitant]
  4. SOTALOL HCL [Concomitant]

REACTIONS (2)
  - PRODUCT QUALITY ISSUE [None]
  - URINARY INCONTINENCE [None]
